FAERS Safety Report 12683980 (Version 1)
Quarter: 2016Q3

REPORT INFORMATION
  Report Type: Spontaneous
  Country: FR (occurrence: FR)
  Receive Date: 20160825
  Receipt Date: 20160825
  Transmission Date: 20161109
  Serious: Yes (Hospitalization)
  Sender: FDA-Public Use
  Company Number: FR-PFIZER INC-2016389654

PATIENT
  Age: 78 Year
  Sex: Male

DRUGS (17)
  1. SIMVASTATIN. [Suspect]
     Active Substance: SIMVASTATIN
     Dosage: UNK
     Route: 048
     Dates: end: 20160721
  2. LEDERFOLINE [Suspect]
     Active Substance: LEUCOVORIN CALCIUM
     Indication: PROPHYLAXIS
     Dosage: UNK
     Route: 048
     Dates: start: 20160530, end: 20160719
  3. BACTRIM [Suspect]
     Active Substance: SULFAMETHOXAZOLE\TRIMETHOPRIM
     Indication: ANTIBIOTIC PROPHYLAXIS
     Dosage: UNK
     Route: 048
     Dates: start: 20160530, end: 20160719
  4. TRAMADOL. [Concomitant]
     Active Substance: TRAMADOL
  5. PRIMPERAN [Concomitant]
     Active Substance: METOCLOPRAMIDE HYDROCHLORIDE
     Dosage: UNK
  6. ZELITREX [Suspect]
     Active Substance: VALACYCLOVIR HYDROCHLORIDE
     Indication: ANTIVIRAL PROPHYLAXIS
     Dosage: UNK
     Route: 048
     Dates: start: 20160530, end: 20160719
  7. CORTANCYL [Concomitant]
     Active Substance: PREDNISONE
  8. LEVACT [Suspect]
     Active Substance: BENDAMUSTINE HYDROCHLORIDE
     Indication: T-CELL LYMPHOMA
     Dosage: 90 MG/M2, CYCLIC (ON DAY 1 + DAY 2 EVERY 28 DAYS)
     Route: 042
     Dates: start: 20160618, end: 20160619
  9. GRANOCYTE [Concomitant]
     Active Substance: LENOGRASTIM
     Dosage: UNK
     Dates: start: 2016
  10. ONDANSETRON HCL [Suspect]
     Active Substance: ONDANSETRON HYDROCHLORIDE
     Indication: PROPHYLAXIS OF NAUSEA AND VOMITING
     Dosage: 8 MG, UNK
     Route: 042
  11. XATRAL [Concomitant]
     Active Substance: ALFUZOSIN
  12. PARACETAMOL [Concomitant]
     Active Substance: ACETAMINOPHEN
     Dosage: UNK, AS NEEDED
  13. MOPRAL /00661201/ [Suspect]
     Active Substance: OMEPRAZOLE SODIUM
     Dosage: 20 MG, 2X/DAY
     Route: 048
     Dates: end: 20160721
  14. CARDENSIEL [Concomitant]
     Active Substance: BISOPROLOL FUMARATE
  15. KARDEGIC [Concomitant]
     Active Substance: ASPIRIN LYSINE
  16. FORLAX [Concomitant]
     Active Substance: POLYETHYLENE GLYCOL 4000
  17. LEVACT [Suspect]
     Active Substance: BENDAMUSTINE HYDROCHLORIDE
     Dosage: 90 MG/M2, CYCLIC (ON DAY 1 + DAY 2 EVERY 28 DAYS)
     Route: 042
     Dates: start: 20160718

REACTIONS (3)
  - Pyrexia [Recovered/Resolved]
  - Acute kidney injury [Recovered/Resolved]
  - Rash maculo-papular [Recovered/Resolved]

NARRATIVE: CASE EVENT DATE: 20160719
